FAERS Safety Report 9670639 (Version 1)
Quarter: 2013Q4

REPORT INFORMATION
  Report Type: Spontaneous
  Country: US (occurrence: US)
  Receive Date: 20131106
  Receipt Date: 20131106
  Transmission Date: 20140711
  Serious: Yes (Death, Other)
  Sender: FDA-Public Use
  Company Number: US-MERCK-1311USA001411

PATIENT
  Age: 60 Year
  Sex: Female

DRUGS (1)
  1. TEMODAR [Suspect]
     Dosage: 125 MG FOR 21 DAYS ON AND 7 DAYS OFF
     Route: 048
     Dates: start: 20130912

REACTIONS (6)
  - Organ failure [Fatal]
  - Metastatic neoplasm [Fatal]
  - Brain oedema [Fatal]
  - Metastases to central nervous system [Fatal]
  - Chronic obstructive pulmonary disease [Fatal]
  - Small cell carcinoma [Fatal]
